FAERS Safety Report 23568666 (Version 1)
Quarter: 2024Q1

REPORT INFORMATION
  Report Type: Report from Study
  Country: CO (occurrence: CO)
  Receive Date: 20240227
  Receipt Date: 20240227
  Transmission Date: 20240409
  Serious: Yes (Hospitalization)
  Sender: FDA-Public Use
  Company Number: CO-JNJFOC-20240261301

PATIENT
  Age: 60 Year
  Sex: Female
  Weight: 48 kg

DRUGS (2)
  1. TREMFYA [Suspect]
     Active Substance: GUSELKUMAB
     Indication: Psoriasis
     Dosage: LAST APPLICATION DATE 22-JAN-2024
     Route: 058
     Dates: start: 20220506
  2. TREMFYA [Suspect]
     Active Substance: GUSELKUMAB

REACTIONS (1)
  - Pneumonia [Not Recovered/Not Resolved]

NARRATIVE: CASE EVENT DATE: 20240205
